FAERS Safety Report 4788744-3 (Version None)
Quarter: 2005Q4

REPORT INFORMATION
  Report Type: 
  Country: None (occurrence: None)
  Receive Date: 20051003
  Receipt Date: 20050105
  Transmission Date: 20060501
  Serious: Yes (Hospitalization)
  Sender: FDA-Public Use
  Company Number: US-JNJFOC-20041000922

PATIENT
  Age: 11 Year
  Sex: Male
  Weight: 34.0198 kg

DRUGS (1)
  1. CONCERTA [Suspect]
     Indication: ATTENTION DEFICIT/HYPERACTIVITY DISORDER
     Dosage: 27 MG, 1 IN 1 DAY,  ORAL
     Route: 048
     Dates: start: 20040809, end: 20040810

REACTIONS (1)
  - HALLUCINATION [None]
